FAERS Safety Report 12075071 (Version 3)
Quarter: 2016Q1

REPORT INFORMATION
  Report Type: Spontaneous
  Country: US (occurrence: US)
  Receive Date: 20160212
  Receipt Date: 20160219
  Transmission Date: 20160526
  Serious: Yes (Other)
  Sender: FDA-Public Use
  Company Number: US-ACTELION-A-NJ2016-131396

PATIENT
  Age: 68 Year
  Sex: Female
  Weight: 142.86 kg

DRUGS (7)
  1. OPSUMIT [Suspect]
     Active Substance: MACITENTAN
     Indication: PULMONARY ARTERIAL HYPERTENSION
     Dosage: 10 MG, QD
     Route: 048
  2. UPTRAVI [Suspect]
     Active Substance: SELEXIPAG
     Indication: PULMONARY ARTERIAL HYPERTENSION
     Dosage: 400 MCG, BID
     Route: 048
     Dates: start: 20160203, end: 20160209
  3. VENTAVIS [Suspect]
     Active Substance: ILOPROST
     Indication: PULMONARY ARTERIAL HYPERTENSION
     Dosage: 5 MCG, UNK
     Route: 055
     Dates: start: 20150716
  4. WARFARIN [Concomitant]
     Active Substance: WARFARIN
  5. ELIQUIS [Concomitant]
     Active Substance: APIXABAN
  6. COREG [Concomitant]
     Active Substance: CARVEDILOL
     Dosage: 10 MG, BID
  7. LOSARTAN AND HYDROCHLOROTHIAZIDE [Concomitant]
     Active Substance: HYDROCHLOROTHIAZIDE\LOSARTAN POTASSIUM
     Dosage: 100MG/25MG, QD

REACTIONS (7)
  - Palpitations [Unknown]
  - Lethargy [Unknown]
  - Fatigue [Unknown]
  - Hypotension [Recovering/Resolving]
  - Headache [Recovering/Resolving]
  - Chest pain [Unknown]
  - Heart rate increased [Recovering/Resolving]

NARRATIVE: CASE EVENT DATE: 20160205
